FAERS Safety Report 24011106 (Version 2)
Quarter: 2024Q3

REPORT INFORMATION
  Report Type: Report from Study
  Country: US (occurrence: US)
  Receive Date: 20240625
  Receipt Date: 20240913
  Transmission Date: 20241016
  Serious: Yes (Death, Other)
  Sender: GILEAD
  Company Number: US-GILEAD-2024-0678474

PATIENT
  Age: 62 Year
  Sex: Male

DRUGS (1)
  1. BREXUCABTAGENE AUTOLEUCEL [Suspect]
     Active Substance: BREXUCABTAGENE AUTOLEUCEL
     Indication: Non-Hodgkin^s lymphoma
     Route: 065

REACTIONS (2)
  - Bacterial infection [Fatal]
  - Myeloproliferative neoplasm [Fatal]
